FAERS Safety Report 5001958-2 (Version None)
Quarter: 2006Q2

REPORT INFORMATION
  Report Type: 
  Country: None (occurrence: None)
  Receive Date: 20060515
  Receipt Date: 20060502
  Transmission Date: 20061013
  Serious: Yes (Other)
  Sender: FDA-Public Use
  Company Number: US-ROCHE-446548

PATIENT
  Age: 72 Year
  Sex: Female

DRUGS (4)
  1. BONIVA [Suspect]
     Indication: OSTEOPOROSIS
     Route: 048
     Dates: start: 20060301, end: 20060401
  2. VITAMINS NOS [Concomitant]
     Route: 048
  3. ZYRTEC [Concomitant]
     Indication: ASTHMA
     Route: 048
  4. SINGULAIR [Concomitant]
     Indication: ASTHMA
     Route: 048

REACTIONS (3)
  - ARTHRALGIA [None]
  - CARPAL TUNNEL SYNDROME [None]
  - INSOMNIA [None]
